FAERS Safety Report 12085699 (Version 3)
Quarter: 2016Q2

REPORT INFORMATION
  Report Type: Spontaneous
  Country: US (occurrence: US)
  Receive Date: 20160217
  Receipt Date: 20160408
  Transmission Date: 20160815
  Serious: Yes (Hospitalization, Other)
  Sender: FDA-Public Use
  Company Number: US-PFIZER INC-2016075790

PATIENT
  Age: 75 Year
  Sex: Female
  Weight: 54 kg

DRUGS (1)
  1. ROBITUSSIN DM [Suspect]
     Active Substance: DEXTROMETHORPHAN HYDROBROMIDE\GUAIFENESIN
     Indication: COUGH
     Dosage: 3 DF, EVERY 4 HOURS
     Route: 048
     Dates: start: 20160205, end: 20160205

REACTIONS (8)
  - Malaise [Recovered/Resolved]
  - Choking [Recovered/Resolved]
  - Condition aggravated [Recovered/Resolved]
  - Abdominal discomfort [Not Recovered/Not Resolved]
  - Intentional product misuse [Recovered/Resolved]
  - Cough [Recovered/Resolved]
  - Urinary incontinence [Recovered/Resolved]
  - Laryngeal pain [Not Recovered/Not Resolved]

NARRATIVE: CASE EVENT DATE: 201602
